FAERS Safety Report 18985801 (Version 3)
Quarter: 2021Q1

REPORT INFORMATION
  Report Type: Report from Study
  Country: TH (occurrence: TH)
  Receive Date: 20210309
  Receipt Date: 20210331
  Transmission Date: 20210420
  Serious: Yes (Hospitalization)
  Sender: FDA-Public Use
  Company Number: NVSC2021TH011216

PATIENT
  Age: 81 Year
  Sex: Male

DRUGS (1)
  1. SACUBITRIL,VALSARTAN [Suspect]
     Active Substance: SACUBITRIL\VALSARTAN
     Indication: ACUTE MYOCARDIAL INFARCTION
     Dosage: 1 MG, BID
     Route: 048
     Dates: start: 20171022

REACTIONS (3)
  - Fall [Unknown]
  - Haemorrhage intracranial [Unknown]
  - Jaw fracture [Unknown]

NARRATIVE: CASE EVENT DATE: 20210117
